FAERS Safety Report 16315872 (Version 2)
Quarter: 2019Q3

REPORT INFORMATION
  Report Type: Spontaneous
  Country: US (occurrence: US)
  Receive Date: 20190515
  Receipt Date: 20190815
  Transmission Date: 20191004
  Serious: No
  Sender: FDA-Public Use
  Company Number: US-RIGEL PHARMACEUTICALS, INC.-2019FOS000125

PATIENT
  Age: 54 Year
  Sex: Male
  Weight: 95.24 kg

DRUGS (2)
  1. TAVALISSE [Suspect]
     Active Substance: FOSTAMATINIB
     Dosage: UNK
  2. TAVALISSE [Suspect]
     Active Substance: FOSTAMATINIB
     Indication: IMMUNE THROMBOCYTOPENIC PURPURA
     Dosage: 150 MG, BID
     Route: 048
     Dates: start: 20181209, end: 20190517

REACTIONS (2)
  - Drug ineffective [Unknown]
  - Product dose omission [Unknown]

NARRATIVE: CASE EVENT DATE: 20190318
